FAERS Safety Report 16325051 (Version 1)
Quarter: 2019Q2

REPORT INFORMATION
  Report Type: Spontaneous
  Country: IT (occurrence: IT)
  Receive Date: 20190517
  Receipt Date: 20190517
  Transmission Date: 20190711
  Serious: Yes (Hospitalization)
  Sender: FDA-Public Use
  Company Number: IT-ELI_LILLY_AND_COMPANY-IT201905004574

PATIENT
  Age: 81 Year
  Sex: Female

DRUGS (8)
  1. NEVIBOLOL DCI [Concomitant]
     Active Substance: NEBIVOLOL
     Indication: HYPERTENSION
  2. DELTACORTENE [Concomitant]
     Active Substance: PREDNISONE
  3. FORSTEO 250UG/ML [Suspect]
     Active Substance: TERIPARATIDE
     Indication: PRODUCT USED FOR UNKNOWN INDICATION
     Dosage: UNK, UNKNOWN
     Route: 065
     Dates: start: 20180426
  4. TACHIPIRINA [Concomitant]
     Active Substance: ACETAMINOPHEN
     Indication: PAIN
  5. DONEPEZIL DONEPEZIL HYDROCHLORIDE [Concomitant]
     Indication: SENILE DEMENTIA
  6. CITALOPRAM CITALOPRAM HYDROCHLORIDE [Concomitant]
     Indication: DEPRESSION
  7. NATECAL [Concomitant]
     Active Substance: CALCIUM CARBONATE\CHOLECALCIFEROL
  8. DIBASE [Concomitant]
     Active Substance: CHOLECALCIFEROL
     Indication: BLOOD CHOLESTEROL

REACTIONS (1)
  - Femur fracture [Unknown]

NARRATIVE: CASE EVENT DATE: 20190509
